FAERS Safety Report 8455912-9 (Version None)
Quarter: 2012Q2

REPORT INFORMATION
  Report Type: 
  Country: None (occurrence: None)
  Receive Date: 20120621
  Receipt Date: 20120618
  Transmission Date: 20120825
  Serious: Yes (Hospitalization)
  Sender: FDA-Public Use
  Company Number: DE-ROCHE-1066993

PATIENT
  Age: 61 Year
  Sex: Female
  Weight: 64 kg

DRUGS (7)
  1. PROPRANOLOL HCL [Concomitant]
  2. AMLODIPINE [Concomitant]
  3. LEVOTHYROXINE SODIUM [Concomitant]
  4. INSUMAN RAPID [Concomitant]
     Dates: start: 20120131
  5. VEMURAFENIB [Suspect]
     Indication: MALIGNANT MELANOMA
     Dosage: TEMPORARILY INTERRUPTED ON 25/APR/2012
     Route: 048
     Dates: start: 20120309, end: 20120425
  6. VEMURAFENIB [Suspect]
     Dates: start: 20120523
  7. VEMURAFENIB [Suspect]
     Dosage: DOSE REDUCED
     Dates: start: 20120509

REACTIONS (1)
  - DRUG ERUPTION [None]
